FAERS Safety Report 4880808-9 (Version None)
Quarter: 2006Q1

REPORT INFORMATION
  Report Type: 
  Country: None (occurrence: None)
  Receive Date: 20060111
  Receipt Date: 20051209
  Transmission Date: 20060701
  Serious: No
  Sender: FDA-Public Use
  Company Number: 2005S1000117

PATIENT
  Age: 89 Year

DRUGS (28)
  1. CUBICIN [Suspect]
     Indication: DEVICE RELATED INFECTION
     Dosage: 350 MG;Q24H;IV
     Route: 042
     Dates: start: 20041212, end: 20050216
  2. CUBICIN [Suspect]
     Indication: STAPHYLOCOCCAL INFECTION
     Dosage: 350 MG;Q24H;IV
     Route: 042
     Dates: start: 20041212, end: 20050216
  3. PRINIVIL [Concomitant]
  4. CLONIDINE [Concomitant]
  5. IMDUR [Concomitant]
  6. METOPROLOL [Concomitant]
  7. NORVASC [Concomitant]
  8. ZOCOR [Concomitant]
  9. LESCOL [Concomitant]
  10. DEMADEX [Concomitant]
  11. SYNTHROID [Concomitant]
  12. LOVENOX [Concomitant]
  13. PAXIL [Concomitant]
  14. AMBIEN [Concomitant]
  15. HUMALOG [Concomitant]
  16. PROTONIX [Concomitant]
  17. ZOFRAN [Concomitant]
  18. VISTAFRIL [Concomitant]
  19. MORPHINE [Concomitant]
  20. LORCET-HD [Concomitant]
  21. DARVOCET [Concomitant]
  22. PERCOCET [Concomitant]
  23. TYLENOL (CAPLET) [Concomitant]
  24. MICONAZOLE [Concomitant]
  25. AZACTAM [Concomitant]
  26. VANCOMYCIN [Concomitant]
  27. CIPROFLOXACIN HCL [Concomitant]
  28. TOBRAMYCIN [Concomitant]

REACTIONS (1)
  - BLOOD CREATININE INCREASED [None]
